FAERS Safety Report 18222732 (Version 1)
Quarter: 2020Q3

REPORT INFORMATION
  Report Type: Spontaneous
  Country: CA (occurrence: CA)
  Receive Date: 20200902
  Receipt Date: 20200902
  Transmission Date: 20201103
  Serious: Yes (Death)
  Sender: FDA-Public Use
  Company Number: CA-TEVA-2020-CA-1821580

PATIENT
  Age: 68 Year
  Sex: Female

DRUGS (2)
  1. METFORMIN [Suspect]
     Active Substance: METFORMIN HYDROCHLORIDE
  2. PERINDOPRIL [Suspect]
     Active Substance: PERINDOPRIL
     Route: 065

REACTIONS (3)
  - Acute kidney injury [Fatal]
  - Toxicity to various agents [Fatal]
  - Metabolic acidosis [Fatal]
